FAERS Safety Report 18335545 (Version 1)
Quarter: 2020Q4

REPORT INFORMATION
  Report Type: Report from Study
  Country: US (occurrence: US)
  Receive Date: 20201001
  Receipt Date: 20201001
  Transmission Date: 20210113
  Serious: Yes (Other)
  Sender: FDA-Public Use
  Company Number: US-JNJFOC-20200942213

PATIENT
  Age: 54 Year
  Sex: Male
  Weight: 122.58 kg

DRUGS (2)
  1. SILDENAFIL CITRATE. [Concomitant]
     Active Substance: SILDENAFIL CITRATE
  2. SELEXIPAG [Suspect]
     Active Substance: SELEXIPAG
     Indication: PULMONARY ARTERIAL HYPERTENSION
     Route: 048
     Dates: start: 20200912

REACTIONS (5)
  - Arthralgia [Unknown]
  - Chronic hepatic failure [Unknown]
  - Weight fluctuation [Unknown]
  - Headache [Unknown]
  - Oedema peripheral [Unknown]
